APPROVED DRUG PRODUCT: CARBINOXAMINE MALEATE
Active Ingredient: CARBINOXAMINE MALEATE
Strength: 4MG
Dosage Form/Route: TABLET;ORAL
Application: A040442 | Product #001 | TE Code: AA
Applicant: GENUS LIFESCIENCES INC
Approved: Mar 19, 2003 | RLD: No | RS: Yes | Type: RX